FAERS Safety Report 18667856 (Version 1)
Quarter: 2020Q4

REPORT INFORMATION
  Report Type: Spontaneous
  Country: US (occurrence: US)
  Receive Date: 20201228
  Receipt Date: 20201228
  Transmission Date: 20210114
  Serious: Yes (Hospitalization)
  Sender: FDA-Public Use
  Company Number: US-BAXTER-2020BAX026142

PATIENT
  Age: 61 Year
  Sex: Female

DRUGS (8)
  1. TERBUTALINE [Suspect]
     Active Substance: TERBUTALINE
     Indication: HAEMODYNAMIC INSTABILITY
     Route: 048
  2. MILRINONE [Concomitant]
     Active Substance: MILRINONE
     Indication: PRODUCT USED FOR UNKNOWN INDICATION
     Route: 065
  3. PROPOFOL. [Concomitant]
     Active Substance: PROPOFOL
     Indication: SEDATIVE THERAPY
     Dosage: 20-50 MCG/KG/MIN
     Route: 065
  4. DOBUTAMINE HYDROCHLORIDE IN DEXTROSE [Suspect]
     Active Substance: DEXTROSE MONOHYDRATE\DEXTROSE MONOHYDRATE\DOBUTAMINE HYDROCHLORIDE\DOBUTAMINE HYDROCHLORIDE
     Indication: DRUG THERAPY
     Route: 065
  5. TERBUTALINE [Suspect]
     Active Substance: TERBUTALINE
     Route: 048
  6. FENTANYL. [Concomitant]
     Active Substance: FENTANYL
     Indication: PAIN MANAGEMENT
     Dosage: 20-75 MCG/KG/HR
     Route: 065
  7. EPINEPHRINE. [Suspect]
     Active Substance: EPINEPHRINE
     Indication: DRUG THERAPY
     Route: 065
  8. MILRINONE [Concomitant]
     Active Substance: MILRINONE
     Route: 041

REACTIONS (2)
  - Drug interaction [Unknown]
  - Serotonin syndrome [Recovering/Resolving]
